FAERS Safety Report 10341818 (Version 1)
Quarter: 2014Q3

REPORT INFORMATION
  Report Type: Spontaneous
  Country: PR (occurrence: US)
  Receive Date: 20140725
  Receipt Date: 20140725
  Transmission Date: 20150326
  Serious: Yes (Hospitalization)
  Sender: FDA-Public Use
  Company Number: PR-ASTRAZENECA-2014SE52977

PATIENT
  Age: 1 Year
  Sex: Male
  Weight: 14.5 kg

DRUGS (2)
  1. QVAR [Concomitant]
     Active Substance: BECLOMETHASONE DIPROPIONATE
     Indication: LUNG DISORDER
     Dates: start: 201405
  2. PULMICORT RESPULES [Suspect]
     Active Substance: BUDESONIDE
     Indication: BRONCHIOLITIS
     Route: 055
     Dates: start: 2014

REACTIONS (4)
  - Dyspnoea [Unknown]
  - Pneumonitis [Unknown]
  - Bronchiolitis [Unknown]
  - Off label use [Not Recovered/Not Resolved]

NARRATIVE: CASE EVENT DATE: 2014
